FAERS Safety Report 13353280 (Version 2)
Quarter: 2017Q2

REPORT INFORMATION
  Report Type: Spontaneous
  Country: US (occurrence: US)
  Receive Date: 20170321
  Receipt Date: 20170410
  Transmission Date: 20170830
  Serious: Yes (Other)
  Sender: FDA-Public Use
  Company Number: GXBR2017US001113

PATIENT
  Age: 46 Year
  Sex: Female
  Weight: 53.97 kg

DRUGS (6)
  1. REMODULIN [Suspect]
     Active Substance: TREPROSTINIL
     Indication: PULMONARY ARTERIAL HYPERTENSION
     Dosage: 0.148 UG/KG, CONT
     Route: 042
     Dates: start: 20140723
  2. REMODULIN [Suspect]
     Active Substance: TREPROSTINIL
     Dosage: 0.142 UNK, UNK
     Route: 042
  3. MIDODRINE HYDROCHLORIDE TABLETS [Suspect]
     Active Substance: MIDODRINE HYDROCHLORIDE
     Indication: PRODUCT USED FOR UNKNOWN INDICATION
     Dosage: UNK DF, UNK
     Route: 065
  4. REMODULIN [Suspect]
     Active Substance: TREPROSTINIL
     Dosage: 0.144 UG/KG, CONT
     Route: 042
  5. OPSUMIT [Suspect]
     Active Substance: MACITENTAN
     Indication: PRODUCT USED FOR UNKNOWN INDICATION
     Dosage: UNK DF, UNK
     Route: 065
  6. REMODULIN [Suspect]
     Active Substance: TREPROSTINIL
     Dosage: 0.140 UNK, UNK
     Route: 042
     Dates: start: 20170111

REACTIONS (11)
  - Cardiac disorder [Unknown]
  - Therapy non-responder [Not Recovered/Not Resolved]
  - Hypotension [Not Recovered/Not Resolved]
  - Malaise [Unknown]
  - Abdominal pain upper [Unknown]
  - Weight decreased [Not Recovered/Not Resolved]
  - Dizziness [Unknown]
  - Hypersomnia [Unknown]
  - Pulmonary arterial pressure abnormal [Unknown]
  - Drug ineffective [Unknown]
  - Oedema [Unknown]

NARRATIVE: CASE EVENT DATE: 201612
